FAERS Safety Report 14364045 (Version 2)
Quarter: 2018Q1

REPORT INFORMATION
  Report Type: Spontaneous
  Country: US (occurrence: US)
  Receive Date: 20180108
  Receipt Date: 20180313
  Transmission Date: 20180509
  Serious: No
  Sender: FDA-Public Use
  Company Number: US-ASTRAZENECA-2018SE01537

PATIENT
  Sex: Male
  Weight: 104.3 kg

DRUGS (2)
  1. SYMBICORT [Suspect]
     Active Substance: BUDESONIDE\FORMOTEROL FUMARATE DIHYDRATE
     Indication: ASTHMA
     Dosage: 160/4.5 MCG 2 PUFFS TWICE A DAY
     Route: 055
  2. DOXYCYCLINE. [Concomitant]
     Active Substance: DOXYCYCLINE
     Dosage: ABOUT 3 WEEKS AGO
     Route: 048

REACTIONS (7)
  - Malaise [Not Recovered/Not Resolved]
  - Product use issue [Unknown]
  - Body height decreased [Unknown]
  - Product quality issue [Unknown]
  - Bronchitis [Not Recovered/Not Resolved]
  - Product label issue [Unknown]
  - Off label use [Not Recovered/Not Resolved]
